FAERS Safety Report 15790922 (Version 1)
Quarter: 2019Q1

REPORT INFORMATION
  Report Type: Spontaneous
  Country: DE (occurrence: DE)
  Receive Date: 20190104
  Receipt Date: 20190104
  Transmission Date: 20190417
  Serious: Yes (Other)
  Sender: FDA-Public Use
  Company Number: DE-BAYER-2019-003103

PATIENT
  Age: 36 Year
  Sex: Female
  Weight: 64 kg

DRUGS (2)
  1. MIRENA [Suspect]
     Active Substance: LEVONORGESTREL
     Dosage: 20 MCG/24HR, CONT
     Route: 015
  2. MIRENA [Suspect]
     Active Substance: LEVONORGESTREL
     Dosage: UNK

REACTIONS (20)
  - Weight increased [None]
  - Back pain [None]
  - Depression [None]
  - Alopecia [None]
  - Muscle tightness [None]
  - Tinnitus [None]
  - Dizziness [None]
  - Suicidal behaviour [None]
  - Panic attack [None]
  - Chest pain [None]
  - Muscular weakness [None]
  - Mastitis [None]
  - Mucosal dryness [None]
  - Loss of libido [None]
  - Palpitations [None]
  - Depressed mood [None]
  - Hair growth abnormal [None]
  - Aggression [None]
  - Menstruation irregular [None]
  - Dyspnoea [None]
